FAERS Safety Report 8313667-2 (Version None)
Quarter: 2012Q2

REPORT INFORMATION
  Report Type: 
  Country: None (occurrence: None)
  Receive Date: 20120426
  Receipt Date: 20120420
  Transmission Date: 20120825
  Serious: No
  Sender: FDA-Public Use
  Company Number: US-B.I. PHARMACEUTICALS,INC./RIDGEFIELD-2012-BP-09284BP

PATIENT
  Age: 85 Year
  Sex: Male

DRUGS (3)
  1. METAMUCIL-2 [Concomitant]
     Indication: CONSTIPATION
  2. DULCOLAX [Suspect]
     Indication: CONSTIPATION
     Dosage: 300 MG
     Route: 048
     Dates: start: 20120419
  3. TRAMADOL HCL [Concomitant]
     Indication: ARTHRITIS
     Route: 048

REACTIONS (1)
  - FAECES DISCOLOURED [None]
